FAERS Safety Report 8584509-5 (Version None)
Quarter: 2012Q3

REPORT INFORMATION
  Report Type: 
  Country: None (occurrence: None)
  Receive Date: 20120810
  Receipt Date: 20120806
  Transmission Date: 20120928
  Serious: No
  Sender: FDA-Public Use
  Company Number: US-PFIZER INC-2012162751

PATIENT
  Sex: Female

DRUGS (1)
  1. LATANOPROST [Suspect]
     Dosage: UNK
     Route: 047

REACTIONS (3)
  - ABNORMAL SENSATION IN EYE [None]
  - FEELING ABNORMAL [None]
  - INCORRECT STORAGE OF DRUG [None]
